FAERS Safety Report 9554459 (Version 1)
Quarter: 2013Q3

REPORT INFORMATION
  Report Type: Spontaneous
  Country: CA (occurrence: CA)
  Receive Date: 20130925
  Receipt Date: 20130925
  Transmission Date: 20140515
  Serious: Yes (Other)
  Sender: FDA-Public Use
  Company Number: CA-MERCK-1309CAN012066

PATIENT
  Age: 59 Year
  Sex: Male

DRUGS (3)
  1. NASONEX [Suspect]
     Indication: PRODUCT USED FOR UNKNOWN INDICATION
     Dosage: 50 MICROGRAM, BID
     Route: 045
  2. AMOXICILLIN [Concomitant]
  3. OTRIVIN [Concomitant]

REACTIONS (1)
  - Anosmia [Not Recovered/Not Resolved]
